FAERS Safety Report 5340712-9 (Version None)
Quarter: 2007Q2

REPORT INFORMATION
  Report Type: 
  Country: None (occurrence: None)
  Receive Date: 20070405
  Receipt Date: 20061219
  Transmission Date: 20071010
  Serious: No
  Sender: FDA-Public Use
  Company Number: US200612003096

PATIENT
  Age: 72 Year
  Sex: Male

DRUGS (5)
  1. CYMBALTA [Suspect]
     Indication: DEPRESSION
     Dosage: 30 MG, ORAL, 60 MG, DAILY (1/D), ORAL
     Route: 048
     Dates: start: 20061128, end: 20061201
  2. CYMBALTA [Suspect]
     Indication: DEPRESSION
     Dosage: 30 MG, ORAL, 60 MG, DAILY (1/D), ORAL
     Route: 048
     Dates: start: 20061201
  3. AMBIEN [Concomitant]
  4. LIPITOR [Concomitant]
  5. CLONOPIN [Concomitant]

REACTIONS (2)
  - DIARRHOEA [None]
  - STOMACH DISCOMFORT [None]
